FAERS Safety Report 8953535 (Version 1)
Quarter: 2012Q4

REPORT INFORMATION
  Report Type: 
  Country: US (occurrence: US)
  Receive Date: 20121206
  Receipt Date: 20121206
  Transmission Date: 20130627
  Serious: Yes (Hospitalization)
  Sender: FDA-Public Use
  Company Number: US-BANPHARM-20120392

PATIENT
  Age: 60 Year
  Sex: Female

DRUGS (3)
  1. IBUPROFEN UNKNOWN PRODUCT [Suspect]
     Indication: JOINT PAIN
     Dosage: -, PRN,
  2. DABIGATRAN [Suspect]
     Indication: CARDIOVASCULAR EVENT PROPHYLAXIS
     Dosage: 150 mg, BID,
  3. ASPIRIN [Suspect]
     Dosage: 81mg , QD,

REACTIONS (10)
  - Mental status changes [Recovered/Resolved]
  - Rectal haemorrhage [Recovered/Resolved]
  - Pharyngeal haemorrhage [Recovered/Resolved]
  - Epistaxis [Recovered/Resolved]
  - Oesophageal haemorrhage [Recovered/Resolved]
  - Haemodynamic instability [Recovered/Resolved]
  - Myocardial ischaemia [Unknown]
  - Gastritis [Unknown]
  - Diverticulum [Unknown]
  - Oedema [Unknown]
